FAERS Safety Report 5663887-0 (Version None)
Quarter: 2008Q1

REPORT INFORMATION
  Report Type: 
  Country: None (occurrence: None)
  Receive Date: 20080311
  Receipt Date: 20080303
  Transmission Date: 20080703
  Serious: Yes (Hospitalization)
  Sender: FDA-Public Use
  Company Number: ADE2008-0136

PATIENT
  Age: 74 Year
  Sex: Female
  Weight: 75 kg

DRUGS (5)
  1. ATENOLOL [Suspect]
     Indication: HYPERTENSION
     Dosage: 50MG PO
     Route: 048
     Dates: start: 20050527, end: 20071124
  2. TERBINAFINE HCL [Suspect]
     Indication: ONYCHOMYCOSIS
     Dosage: 250MG PO
     Route: 048
     Dates: start: 20071114, end: 20071124
  3. ALENDRONATE SODIUM [Concomitant]
  4. AMOXICILLIN [Concomitant]
  5. BENDROFLUMETHIAZIDE [Concomitant]

REACTIONS (3)
  - CEREBROVASCULAR ACCIDENT [None]
  - FUNGAL INFECTION [None]
  - NAIL INFECTION [None]
